FAERS Safety Report 18369782 (Version 2)
Quarter: 2020Q4

REPORT INFORMATION
  Report Type: Spontaneous
  Country: RU (occurrence: RU)
  Receive Date: 20201012
  Receipt Date: 20201026
  Transmission Date: 20210114
  Serious: Yes (Other)
  Sender: FDA-Public Use
  Company Number: RU-PFIZER INC-2020388291

PATIENT
  Age: 56 Year
  Sex: Male

DRUGS (8)
  1. ERTAPENEM. [Concomitant]
     Active Substance: ERTAPENEM SODIUM
     Indication: COVID-19
     Dosage: 1000 MG, DAILY
     Dates: start: 20200813, end: 20200818
  2. TOCILIZUMAB. [Concomitant]
     Active Substance: TOCILIZUMAB
     Indication: COVID-19
     Dosage: 400 MG
     Dates: start: 20200811, end: 20200811
  3. ENALAPRIL [Concomitant]
     Active Substance: ENALAPRIL
     Indication: COVID-19
     Dosage: UNK
  4. BROMGEXIN [Concomitant]
     Indication: COVID-19
     Dosage: UNK
  5. ENOXAPARIN SODIUM. [Concomitant]
     Active Substance: ENOXAPARIN SODIUM
     Indication: COVID-19
     Dosage: 0.8 (UNIT NOT PROVIDED), 2X/DAY
     Dates: start: 20200807, end: 20200818
  6. TOFACITINIB CITRATE [Suspect]
     Active Substance: TOFACITINIB CITRATE
     Indication: COVID-19
     Dosage: 10 MG, 2X/DAY
     Route: 048
     Dates: start: 20200809, end: 20200814
  7. PARACETAMOL [Concomitant]
     Active Substance: ACETAMINOPHEN
     Indication: COVID-19
     Dosage: UNK
  8. LEVOFLOXACIN. [Concomitant]
     Active Substance: LEVOFLOXACIN
     Indication: COVID-19
     Dosage: 1000 MG, DAILY
     Dates: start: 20200807, end: 20200812

REACTIONS (3)
  - Drug-induced liver injury [Recovering/Resolving]
  - Drug ineffective for unapproved indication [Recovered/Resolved]
  - Off label use [Unknown]

NARRATIVE: CASE EVENT DATE: 20200809
